FAERS Safety Report 9317916 (Version 1)
Quarter: 2013Q2

REPORT INFORMATION
  Report Type: Spontaneous
  Country: US (occurrence: US)
  Receive Date: 20130530
  Receipt Date: 20130530
  Transmission Date: 20140414
  Serious: No
  Sender: FDA-Public Use
  Company Number: US-GLAXOSMITHKLINE-A0995451A

PATIENT
  Age: 17 Year
  Sex: Male

DRUGS (1)
  1. VENTOLIN [Suspect]
     Indication: ASTHMA
     Route: 055

REACTIONS (5)
  - Drug ineffective [Recovered/Resolved]
  - Asthma [Unknown]
  - Intentional drug misuse [Unknown]
  - Inflammation [Unknown]
  - Dependence [Unknown]
